FAERS Safety Report 14910285 (Version 3)
Quarter: 2018Q2

REPORT INFORMATION
  Report Type: Report from Study
  Country: CA (occurrence: CA)
  Receive Date: 20180517
  Receipt Date: 20180601
  Transmission Date: 20180711
  Serious: Yes (Death)
  Sender: FDA-Public Use
  Company Number: CA-HLSUS-2018-CA-000758

PATIENT
  Age: 83 Year
  Sex: Female

DRUGS (1)
  1. CLOZARIL [Suspect]
     Active Substance: CLOZAPINE
     Indication: PSYCHOTIC DISORDER
     Dosage: 12.5 MG PER DAY FOR 3 DAYS AND 25 MG PER DAY FOR 5 DAYS
     Route: 048
     Dates: start: 20180306, end: 20180314

REACTIONS (4)
  - Dementia with Lewy bodies [Unknown]
  - Psychotic disorder [Unknown]
  - Delirium [Fatal]
  - Hypophagia [Not Recovered/Not Resolved]

NARRATIVE: CASE EVENT DATE: 20180313
